FAERS Safety Report 24762536 (Version 1)
Quarter: 2024Q4

REPORT INFORMATION
  Report Type: Report from Study
  Country: PK (occurrence: PK)
  Receive Date: 20241221
  Receipt Date: 20241221
  Transmission Date: 20250115
  Serious: Yes (Death)
  Sender: ROCHE
  Company Number: PK-ROCHE-10000160162

PATIENT
  Age: 87 Year
  Sex: Male

DRUGS (1)
  1. AVASTIN [Suspect]
     Active Substance: BEVACIZUMAB
     Indication: Metastatic renal cell carcinoma
     Route: 042
     Dates: start: 20241022

REACTIONS (1)
  - Metastatic renal cell carcinoma [Fatal]

NARRATIVE: CASE EVENT DATE: 20241202
